FAERS Safety Report 9527926 (Version 2)
Quarter: 2013Q4

REPORT INFORMATION
  Report Type: Spontaneous
  Country: GB (occurrence: GB)
  Receive Date: 20130917
  Receipt Date: 20131207
  Transmission Date: 20140711
  Serious: Yes (Other)
  Sender: FDA-Public Use
  Company Number: GB-ACCORD-019335

PATIENT
  Age: 79 Year
  Sex: Male
  Weight: 87.8 kg

DRUGS (17)
  1. ADCAL-D3 [Concomitant]
  2. PARACETAMOL [Concomitant]
  3. ATENOLOL [Concomitant]
  4. AMLODIPINE [Suspect]
     Indication: CARDIAC FAILURE
     Route: 048
     Dates: start: 200603
  5. PREDNISOLONE [Concomitant]
  6. OMEPRAZOLE [Concomitant]
  7. IMDUR [Concomitant]
  8. CANDESARTAN [Concomitant]
  9. E45 [Concomitant]
  10. ALENDRONIC ACID [Concomitant]
     Dates: start: 200703
  11. DESLORATADINE [Concomitant]
  12. OILATUM [Concomitant]
  13. ASPIRIN [Concomitant]
  14. MOVICOL [Concomitant]
  15. NICORANDIL [Concomitant]
  16. NASONEX [Concomitant]
  17. SIMVASTATIN [Concomitant]

REACTIONS (6)
  - Cough [Not Recovered/Not Resolved]
  - Rhinitis allergic [Not Recovered/Not Resolved]
  - Constipation [Not Recovered/Not Resolved]
  - Extrapyramidal disorder [Not Recovered/Not Resolved]
  - Condition aggravated [Unknown]
  - Parkinsonism [Unknown]
